FAERS Safety Report 12990551 (Version 1)
Quarter: 2016Q4

REPORT INFORMATION
  Report Type: Spontaneous
  Country: US (occurrence: US)
  Receive Date: 20161130
  Receipt Date: 20161130
  Transmission Date: 20170207
  Serious: Yes (Other)
  Sender: FDA-Public Use
  Company Number: None

PATIENT
  Age: 64 Year
  Sex: Female
  Weight: 60.3 kg

DRUGS (9)
  1. NATURAL PROGESTERONE [Concomitant]
     Active Substance: PROGESTERONE
  2. VITAMIN D [Concomitant]
     Active Substance: CHOLECALCIFEROL
  3. ZINC [Concomitant]
     Active Substance: ZINC\ZINC CHLORIDE
  4. VITAMIN K [Concomitant]
     Active Substance: PHYTONADIONE
  5. PROBIOTIC [Concomitant]
     Active Substance: PROBIOTICS NOS
  6. PEPCID AC [Suspect]
     Active Substance: FAMOTIDINE
     Indication: DYSPEPSIA
     Dosage: ?          QUANTITY:50 TABLET(S);?
     Route: 048
     Dates: start: 20161121, end: 20161123
  7. VITAMIN C [Concomitant]
     Active Substance: ASCORBIC ACID
  8. FISH OIL [Concomitant]
     Active Substance: FISH OIL
  9. VITAMIN B [Concomitant]
     Active Substance: VITAMIN B

REACTIONS (5)
  - Tinnitus [None]
  - Head discomfort [None]
  - Nervous system disorder [None]
  - Abdominal discomfort [None]
  - Tremor [None]

NARRATIVE: CASE EVENT DATE: 20161123
